FAERS Safety Report 22318531 (Version 1)
Quarter: 2023Q2

REPORT INFORMATION
  Report Type: Spontaneous
  Country: US (occurrence: US)
  Receive Date: 20230515
  Receipt Date: 20230515
  Transmission Date: 20230721
  Serious: Yes (Hospitalization, Other)
  Sender: FDA-Public Use
  Company Number: US-LUPIN PHARMACEUTICALS INC.-2023-03625

PATIENT
  Age: 86 Year
  Sex: Female

DRUGS (1)
  1. LEVOTHYROXINE [Suspect]
     Active Substance: LEVOTHYROXINE
     Indication: Product used for unknown indication
     Dosage: 3000 MICROGRAM
     Route: 048

REACTIONS (7)
  - Intentional product misuse [Unknown]
  - Intentional overdose [Unknown]
  - Suicide attempt [Unknown]
  - Tachycardia [Recovered/Resolved]
  - Tri-iodothyronine increased [Recovered/Resolved]
  - Thyroxine increased [Recovered/Resolved]
  - Blood pressure increased [Recovered/Resolved]
